FAERS Safety Report 7068795-9 (Version None)
Quarter: 2010Q4

REPORT INFORMATION
  Report Type: 
  Country: None (occurrence: None)
  Receive Date: 20101027
  Receipt Date: 20101027
  Transmission Date: 20110411
  Serious: Yes (Other)
  Sender: FDA-Public Use
  Company Number: None

PATIENT
  Age: 67 Year
  Sex: Male
  Weight: 88.4514 kg

DRUGS (2)
  1. ATENOLOL [Suspect]
     Indication: BLOOD PRESSURE
     Dosage: 100 MG ONE PER DAY PO
     Route: 048
     Dates: start: 20101017, end: 20101024
  2. ATENOLOL [Suspect]
     Indication: VENTRICULAR EXTRASYSTOLES
     Dosage: 100 MG ONE PER DAY PO
     Route: 048
     Dates: start: 20101017, end: 20101024

REACTIONS (5)
  - BLOOD PRESSURE ABNORMAL [None]
  - DRUG INEFFECTIVE [None]
  - HEART RATE INCREASED [None]
  - PRODUCT QUALITY ISSUE [None]
  - VENTRICULAR EXTRASYSTOLES [None]
